FAERS Safety Report 10357006 (Version 1)
Quarter: 2014Q3

REPORT INFORMATION
  Report Type: Spontaneous
  Country: US (occurrence: US)
  Receive Date: 20140801
  Receipt Date: 20140801
  Transmission Date: 20150326
  Serious: Yes (Life-Threatening, Hospitalization, Congenital Anomaly, Other)
  Sender: FDA-Public Use
  Company Number: US-JNJFOC-20140716605

PATIENT
  Sex: Female

DRUGS (2)
  1. TOPAMAX [Suspect]
     Active Substance: TOPIRAMATE
     Indication: PRODUCT USED FOR UNKNOWN INDICATION
     Route: 064
  2. LEXAPRO [Suspect]
     Active Substance: ESCITALOPRAM OXALATE
     Indication: PRODUCT USED FOR UNKNOWN INDICATION
     Route: 065

REACTIONS (7)
  - Atrial septal defect [Recovering/Resolving]
  - Aortic stenosis [Not Recovered/Not Resolved]
  - Cardiopulmonary failure [Recovered/Resolved]
  - Congenital heart valve disorder [Recovering/Resolving]
  - Hypoxia [Recovered/Resolved]
  - Foetal exposure during pregnancy [Recovered/Resolved]
  - Patent ductus arteriosus [Recovering/Resolving]
